FAERS Safety Report 7773750-7 (Version None)
Quarter: 2011Q3

REPORT INFORMATION
  Report Type: 
  Country: None (occurrence: None)
  Receive Date: 20110921
  Receipt Date: 20110906
  Transmission Date: 20111222
  Serious: Yes (Other)
  Sender: FDA-Public Use
  Company Number: AUR-APL-2011-04954

PATIENT
  Age: 34 Year
  Sex: Female

DRUGS (1)
  1. CITALOPRAM HYDROBROMIDE [Suspect]
     Indication: PRODUCT USED FOR UNKNOWN INDICATION

REACTIONS (11)
  - HEADACHE [None]
  - PYREXIA [None]
  - CONVULSION [None]
  - HYPOAESTHESIA [None]
  - BRUXISM [None]
  - AGITATION [None]
  - NUCHAL RIGIDITY [None]
  - TREMOR [None]
  - PARAESTHESIA [None]
  - FEELING ABNORMAL [None]
  - CHILLS [None]
